FAERS Safety Report 17160840 (Version 1)
Quarter: 2019Q4

REPORT INFORMATION
  Report Type: Other
  Country: ES (occurrence: ES)
  Receive Date: 20191216
  Receipt Date: 20191216
  Transmission Date: 20200122
  Serious: Yes (Other)
  Sender: FDA-Public Use
  Company Number: ES-COLLEGIUM PHARMACEUTICAL, INC.-ES-2019COL001488

PATIENT
  Age: 58 Year
  Sex: Male
  Weight: 82.3 kg

DRUGS (1)
  1. TAPENTADOL EXTENDED RELEASE [Suspect]
     Active Substance: TAPENTADOL
     Indication: BACK PAIN
     Dosage: 100 MG, BID
     Route: 048
     Dates: start: 20191011, end: 20191015

REACTIONS (2)
  - Urinary retention [Recovered/Resolved]
  - Constipation [Recovered/Resolved]

NARRATIVE: CASE EVENT DATE: 20191015
